FAERS Safety Report 25717709 (Version 2)
Quarter: 2025Q3

REPORT INFORMATION
  Report Type: Report from Study
  Country: US (occurrence: US)
  Receive Date: 20250822
  Receipt Date: 20250917
  Transmission Date: 20251020
  Serious: Yes (Death)
  Sender: CALLIDITAS THERAPEUTICS AB
  Company Number: US-Calliditas-2025CAL02565

PATIENT
  Age: 54 Year
  Sex: Female

DRUGS (8)
  1. TARPEYO [Suspect]
     Active Substance: BUDESONIDE
     Indication: IgA nephropathy
     Route: 048
     Dates: start: 20250604
  2. AMLODIPINE [Concomitant]
     Active Substance: AMLODIPINE BESYLATE
  3. BACLOFEN [Concomitant]
     Active Substance: BACLOFEN
  4. CETIRIZINE [Concomitant]
     Active Substance: CETIRIZINE HYDROCHLORIDE
  5. CHOLECALCIFEROL [Concomitant]
     Active Substance: CHOLECALCIFEROL
  6. CLARITIN [Concomitant]
     Active Substance: LORATADINE
  7. LISINOPRIL [Concomitant]
     Active Substance: LISINOPRIL
  8. LOKELMA [SODIUM ZIRCONIUM CYCLOSILICATE HYDRATE] [Concomitant]

REACTIONS (1)
  - Cardiac arrest [Fatal]

NARRATIVE: CASE EVENT DATE: 20250707
